FAERS Safety Report 9266726 (Version 1)
Quarter: 2013Q2

REPORT INFORMATION
  Report Type: Spontaneous
  Country: US (occurrence: US)
  Receive Date: 20130502
  Receipt Date: 20130502
  Transmission Date: 20140414
  Serious: Yes (Other)
  Sender: FDA-Public Use
  Company Number: US-PFIZER INC-2013132128

PATIENT
  Age: 79 Year
  Sex: Male
  Weight: 73 kg

DRUGS (15)
  1. SUTENT [Suspect]
     Dosage: 37.5 MG, UNK
     Dates: end: 201212
  2. SUTENT [Suspect]
     Dosage: 12.5 MG, UNK
     Dates: start: 20130304
  3. SUTENT [Suspect]
     Dosage: 25 MG, UNK
     Dates: start: 20130411
  4. METOPROLOL [Concomitant]
     Dosage: UNK
  5. SIMVASTATIN [Concomitant]
     Dosage: UNK
  6. PRILOSEC [Concomitant]
     Dosage: UNK
  7. LOSARTAN POTASSIUM [Concomitant]
     Dosage: UNK
  8. FELODIPINE [Concomitant]
     Dosage: UNK
  9. ZYRTEC [Concomitant]
     Dosage: UNK
  10. ASA [Concomitant]
     Dosage: UNK
  11. TYLENOL [Concomitant]
     Dosage: UNK
  12. HYDROCODONE [Concomitant]
     Dosage: UNK
  13. VITAMIN D [Concomitant]
     Dosage: UNK
  14. FENTANYL [Concomitant]
     Dosage: UNK
  15. KETOCONAZOLE [Concomitant]
     Dosage: UNK

REACTIONS (6)
  - Deafness [Unknown]
  - Fungal skin infection [Unknown]
  - Skin irritation [Unknown]
  - Decreased appetite [Unknown]
  - Dysgeusia [Unknown]
  - Fatigue [Unknown]
